FAERS Safety Report 16369677 (Version 3)
Quarter: 2019Q3

REPORT INFORMATION
  Report Type: Spontaneous
  Country: DE (occurrence: DE)
  Receive Date: 20190530
  Receipt Date: 20190718
  Transmission Date: 20191004
  Serious: Yes (Death)
  Sender: FDA-Public Use
  Company Number: PHHY2019DE124544

PATIENT
  Age: 82 Year
  Sex: Male
  Weight: 71 kg

DRUGS (19)
  1. MEKINIST [Suspect]
     Active Substance: TRAMETINIB DIMETHYL SULFOXIDE
     Indication: MALIGNANT MELANOMA
     Dosage: 2 MG, QD
     Route: 048
     Dates: start: 20190507, end: 20190520
  2. TAFINLAR [Suspect]
     Active Substance: DABRAFENIB MESYLATE
     Indication: MALIGNANT MELANOMA
     Dosage: 300 MG, QD
     Route: 048
     Dates: start: 20190507, end: 20190520
  3. CARVEDILOL 1A PHARMA [Concomitant]
     Active Substance: CARVEDILOL
     Dosage: UNK (100 PIECES)
     Route: 065
     Dates: start: 20190321
  4. LISKANTIN [Concomitant]
     Active Substance: PRIMIDONE
     Dosage: UNK (200 PIECES)
     Route: 065
     Dates: start: 20190327
  5. RAMIPRIL STADA [Concomitant]
     Indication: PRODUCT USED FOR UNKNOWN INDICATION
     Dosage: UNK (100 PIECES)
     Route: 065
     Dates: start: 20190318
  6. RAMIPRIL. [Concomitant]
     Active Substance: RAMIPRIL
     Indication: HYPERTENSION
     Dosage: UNK (100 PIECES)
     Route: 065
     Dates: start: 20190311
  7. SITAGLIPTIN [Concomitant]
     Active Substance: SITAGLIPTIN
     Indication: DIABETES MELLITUS
     Dosage: UNK
     Route: 065
  8. XELEVIA [Concomitant]
     Active Substance: SITAGLIPTIN PHOSPHATE
     Indication: ANTICOAGULANT THERAPY
     Dosage: 100 OT, UNK
     Route: 048
  9. PARACETAMOL [Concomitant]
     Active Substance: ACETAMINOPHEN
     Indication: PRODUCT USED FOR UNKNOWN INDICATION
     Dosage: UNK (20 PIECES)
     Route: 065
     Dates: start: 20190515
  10. TEUFELSKRALLE [Concomitant]
     Indication: PRODUCT USED FOR UNKNOWN INDICATION
     Dosage: UNK (200 PIECES) (PHYTEUMA)
     Route: 065
     Dates: start: 20190322
  11. LANTUS [Concomitant]
     Active Substance: INSULIN GLARGINE
     Indication: PRODUCT USED FOR UNKNOWN INDICATION
     Dosage: UNK (100E/M1 (10X3 ML))
     Route: 065
     Dates: start: 20190122
  12. PARACETAMOL [Concomitant]
     Active Substance: ACETAMINOPHEN
     Dosage: UNK (20 PIECES)
     Route: 065
     Dates: start: 20190520
  13. TORASEMID [Concomitant]
     Active Substance: TORSEMIDE
     Indication: PRODUCT USED FOR UNKNOWN INDICATION
     Dosage: UNK (100 PIECES)
     Route: 065
     Dates: start: 20190430
  14. ACTRAPID [Concomitant]
     Active Substance: INSULIN HUMAN
     Indication: PRODUCT USED FOR UNKNOWN INDICATION
     Dosage: UNK (10X3 ML)
     Route: 065
     Dates: start: 20190315
  15. CARVEDILOL 1A PHARMA [Concomitant]
     Active Substance: CARVEDILOL
     Dosage: UNK (100 PIECES)
     Route: 065
     Dates: start: 20190329
  16. LISKANTIN [Concomitant]
     Active Substance: PRIMIDONE
     Indication: PRODUCT USED FOR UNKNOWN INDICATION
     Dosage: UNK (200 PIECES)
     Route: 065
     Dates: start: 20190115
  17. CARVEDILOL 1A PHARMA [Concomitant]
     Active Substance: CARVEDILOL
     Indication: HYPERTENSION
     Dosage: UNK (100 PIECES)
     Route: 065
     Dates: start: 20190129
  18. SIMVASTATIN RATIOPHARM [Concomitant]
     Active Substance: SIMVASTATIN
     Indication: PRODUCT USED FOR UNKNOWN INDICATION
     Dosage: UNK (100 PIECES)
     Route: 065
     Dates: start: 20190329
  19. DEKRISTOL [Concomitant]
     Active Substance: CHOLECALCIFEROL
     Indication: PRODUCT USED FOR UNKNOWN INDICATION
     Dosage: UNK
     Route: 065

REACTIONS (2)
  - Malignant melanoma [Fatal]
  - Malignant neoplasm progression [Fatal]

NARRATIVE: CASE EVENT DATE: 20190507
